FAERS Safety Report 9575856 (Version 2)
Quarter: 2013Q4

REPORT INFORMATION
  Report Type: Spontaneous
  Country: US (occurrence: US)
  Receive Date: 20131001
  Receipt Date: 20131001
  Transmission Date: 20140711
  Serious: No
  Sender: FDA-Public Use
  Company Number: US-AMGEN-KDL440257

PATIENT
  Age: 88 Year
  Sex: Male
  Weight: 59 kg

DRUGS (2)
  1. PROCRIT [Suspect]
     Indication: NEPHROGENIC ANAEMIA
     Dosage: 40000 IU, Q2WK
     Route: 058
     Dates: start: 20100913
  2. LOSARTAN POTASSIUM [Concomitant]
     Dosage: 50 MG, BID
     Route: 048

REACTIONS (2)
  - Haemoglobin abnormal [Not Recovered/Not Resolved]
  - Feeling abnormal [Not Recovered/Not Resolved]
